FAERS Safety Report 9091068 (Version 1)
Quarter: 2013Q1

REPORT INFORMATION
  Report Type: Report from Study
  Country: US (occurrence: US)
  Receive Date: 20130218
  Receipt Date: 20130218
  Transmission Date: 20140127
  Serious: No
  Sender: FDA-Public Use
  Company Number: US-ABBOTT-12P-163-0948590-00

PATIENT
  Sex: Female
  Weight: 94.89 kg

DRUGS (2)
  1. SIMCOR 500MG/20MG [Suspect]
     Indication: PRODUCT USED FOR UNKNOWN INDICATION
     Dosage: 500/20MG EVERY NIGHT
  2. AMBIEN [Concomitant]
     Indication: PRODUCT USED FOR UNKNOWN INDICATION

REACTIONS (2)
  - Crying [Recovering/Resolving]
  - Flushing [Recovered/Resolved]
